FAERS Safety Report 18415378 (Version 1)
Quarter: 2020Q4

REPORT INFORMATION
  Report Type: Spontaneous
  Country: US (occurrence: US)
  Receive Date: 20201022
  Receipt Date: 20201022
  Transmission Date: 20210114
  Serious: Yes (Hospitalization)
  Sender: FDA-Public Use
  Company Number: None

PATIENT
  Age: 66 Year
  Sex: Male
  Weight: 87 kg

DRUGS (2)
  1. SPIRONOLACTONE (SPIRONOLACTONE 25MG TAB (1/2 TAB) ) [Suspect]
     Active Substance: SPIRONOLACTONE
     Indication: CARDIAC FAILURE CONGESTIVE
     Route: 048
     Dates: start: 20201007, end: 20201010
  2. SACUBITRIL/VALSARTAN (SACUBITRIL 49MG/VALSARTAN 51MG TAB) [Suspect]
     Active Substance: SACUBITRIL\VALSARTAN
     Indication: CARDIAC FAILURE CONGESTIVE
     Dosage: ?          OTHER DOSE:49/51MG;?
     Route: 048
     Dates: start: 20200918, end: 20201013

REACTIONS (3)
  - Hyperkalaemia [None]
  - Electrocardiogram T wave peaked [None]
  - Nausea [None]

NARRATIVE: CASE EVENT DATE: 20201010
